FAERS Safety Report 7698916-6 (Version None)
Quarter: 2011Q3

REPORT INFORMATION
  Report Type: 
  Country: None (occurrence: None)
  Receive Date: 20110819
  Receipt Date: 20110815
  Transmission Date: 20111222
  Serious: Yes (Other)
  Sender: FDA-Public Use
  Company Number: GB-BAXTER-2011BH026879

PATIENT
  Age: 9 Year
  Sex: Female

DRUGS (5)
  1. PLASMA [Concomitant]
     Indication: PRODUCT USED FOR UNKNOWN INDICATION
     Route: 065
  2. PREDNISOLONE [Suspect]
     Indication: WEGENER'S GRANULOMATOSIS
     Route: 048
  3. CYCLOPHOSPHAMIDE [Suspect]
     Indication: WEGENER'S GRANULOMATOSIS
     Route: 042
  4. METHYLPREDNISOLONE [Suspect]
     Indication: WEGENER'S GRANULOMATOSIS
     Route: 042
  5. RITUXIMAB [Suspect]
     Indication: ADJUVANT THERAPY
     Route: 065

REACTIONS (2)
  - LOWER RESPIRATORY TRACT INFECTION [None]
  - HERPES ZOSTER [None]
